FAERS Safety Report 12321501 (Version 2)
Quarter: 2016Q3

REPORT INFORMATION
  Report Type: Spontaneous
  Country: IT (occurrence: IT)
  Receive Date: 20160502
  Receipt Date: 20160708
  Transmission Date: 20161109
  Serious: Yes (Hospitalization)
  Sender: FDA-Public Use
  Company Number: IT-AUROBINDO-AUR-APL-2016-05243

PATIENT
  Age: 73 Year
  Sex: Female

DRUGS (3)
  1. KENACORT [Concomitant]
     Active Substance: TRIAMCINOLONE
     Indication: HYPERSENSITIVITY
     Dosage: UNK
     Dates: start: 20150219, end: 20150221
  2. LEVOFLOXACIN. [Suspect]
     Active Substance: LEVOFLOXACIN
     Indication: RESPIRATORY TRACT INFECTION
     Dosage: 1 DF, DAILY
     Route: 048
     Dates: start: 20150218, end: 20150219
  3. AMOXICILLIN+CLAVULANIC ACID [Suspect]
     Active Substance: AMOXICILLIN\CLAVULANIC ACID
     Indication: RESPIRATORY TRACT INFECTION
     Dosage: 1 DF, DAILY
     Route: 048
     Dates: start: 20150219, end: 20150221

REACTIONS (4)
  - Dysphagia [Not Recovered/Not Resolved]
  - Stomatitis [Not Recovered/Not Resolved]
  - Bronchitis [Not Recovered/Not Resolved]
  - Drug ineffective [Not Recovered/Not Resolved]

NARRATIVE: CASE EVENT DATE: 20150219
